FAERS Safety Report 6081737-8 (Version None)
Quarter: 2009Q1

REPORT INFORMATION
  Report Type: 
  Country: None (occurrence: None)
  Receive Date: 20090218
  Receipt Date: 20090212
  Transmission Date: 20090719
  Serious: Yes (Other)
  Sender: FDA-Public Use
  Company Number: FR-ABBOTT-09P-056-0498188-00

PATIENT
  Sex: Female

DRUGS (3)
  1. HUMIRA [Suspect]
     Indication: ANKYLOSING SPONDYLITIS
     Route: 058
     Dates: start: 20080121
  2. HUMIRA [Suspect]
     Dosage: 2 HUMIRA INJECTIONS PER WEEK
     Dates: start: 20081007, end: 20081020
  3. HUMIRA [Suspect]
     Dosage: 3 HUMIRA INJECTIONS PER WEEK
     Dates: start: 20081021, end: 20081120

REACTIONS (3)
  - NEUROSENSORY HYPOACUSIS [None]
  - THROMBOPHLEBITIS [None]
  - VERTIGO [None]
